FAERS Safety Report 7642485-3 (Version None)
Quarter: 2011Q3

REPORT INFORMATION
  Report Type: 
  Country: None (occurrence: None)
  Receive Date: 20110728
  Receipt Date: 20110727
  Transmission Date: 20111222
  Serious: Yes (Hospitalization)
  Sender: FDA-Public Use
  Company Number: JP-ABBOTT-10P-087-0659297-00

PATIENT
  Sex: Male

DRUGS (2)
  1. HUMIRA [Suspect]
     Indication: PSORIASIS
     Dosage: 80 MG LOADING DOSE
     Route: 058
     Dates: start: 20100430, end: 20100430
  2. HUMIRA [Suspect]
     Route: 058
     Dates: start: 20100521, end: 20100701

REACTIONS (2)
  - WHITE BLOOD CELL COUNT INCREASED [None]
  - TEMPORAL ARTERITIS [None]
